FAERS Safety Report 7863573-2 (Version None)
Quarter: 2011Q4

REPORT INFORMATION
  Report Type: 
  Country: None (occurrence: None)
  Receive Date: 20111027
  Receipt Date: 20101207
  Transmission Date: 20120403
  Serious: No
  Sender: FDA-Public Use
  Company Number: US-AMGEN-USASP2010008074

PATIENT
  Sex: Female

DRUGS (1)
  1. ENBREL [Suspect]
     Indication: ANKYLOSING SPONDYLITIS
     Dosage: 50 MG, EVERY 7 TO 8 DAYS
     Route: 058
     Dates: start: 20070101

REACTIONS (3)
  - ORAL HERPES [None]
  - LIP DRY [None]
  - CHAPPED LIPS [None]
